FAERS Safety Report 12109938 (Version 1)
Quarter: 2016Q1

REPORT INFORMATION
  Report Type: Spontaneous
  Country: US (occurrence: None)
  Receive Date: 20160223
  Receipt Date: 20160223
  Transmission Date: 20160526
  Serious: Yes (Hospitalization)
  Sender: FDA-Public Use
  Company Number: None

PATIENT
  Age: 59 Year
  Sex: Male

DRUGS (2)
  1. HCTZ [Suspect]
     Active Substance: HYDROCHLOROTHIAZIDE
  2. LOSARTAN. [Suspect]
     Active Substance: LOSARTAN

REACTIONS (6)
  - Memory impairment [None]
  - Incoherent [None]
  - Treatment noncompliance [None]
  - Drug effect decreased [None]
  - Blood pressure increased [None]
  - Cerebrovascular accident [None]
